FAERS Safety Report 5463214-8 (Version None)
Quarter: 2007Q3

REPORT INFORMATION
  Report Type: 
  Country: None (occurrence: None)
  Receive Date: 20070920
  Receipt Date: 20070914
  Transmission Date: 20080115
  Serious: Yes (Death)
  Sender: FDA-Public Use
  Company Number: B0481623A

PATIENT
  Age: 65 Year
  Sex: Male

DRUGS (2)
  1. PAXIL [Suspect]
     Indication: DEPRESSION
     Route: 048
     Dates: start: 20021001
  2. GASMOTIN [Concomitant]
     Indication: PROPHYLAXIS
     Dosage: 15MG PER DAY
     Route: 048
     Dates: start: 20021001, end: 20021011

REACTIONS (1)
  - COMPLETED SUICIDE [None]
